FAERS Safety Report 10514309 (Version 1)
Quarter: 2014Q4

REPORT INFORMATION
  Report Type: Report from Study
  Country: CA (occurrence: CA)
  Receive Date: 20141013
  Receipt Date: 20141013
  Transmission Date: 20150528
  Serious: Yes (Hospitalization)
  Sender: FDA-Public Use
  Company Number: CA-BRISTOL-MYERS SQUIBB COMPANY-21461595

PATIENT
  Age: 75 Year
  Sex: Female

DRUGS (4)
  1. ORENCIA [Suspect]
     Active Substance: ABATACEPT
     Indication: RHEUMATOID ARTHRITIS
     Route: 058
     Dates: start: 20131116
  2. CELEBREX [Concomitant]
     Active Substance: CELECOXIB
  3. METHOTREXATE [Concomitant]
     Active Substance: METHOTREXATE
  4. PLAQUENIL [Concomitant]
     Active Substance: HYDROXYCHLOROQUINE SULFATE

REACTIONS (2)
  - Arthropathy [Unknown]
  - Ankle operation [Unknown]

NARRATIVE: CASE EVENT DATE: 20140514
